FAERS Safety Report 20453071 (Version 1)
Quarter: 2022Q1

REPORT INFORMATION
  Report Type: Report from Study
  Country: DE (occurrence: DE)
  Receive Date: 20220210
  Receipt Date: 20220210
  Transmission Date: 20220423
  Serious: Yes (Death, Hospitalization)
  Sender: FDA-Public Use
  Company Number: DE-JNJFOC-20220211613

PATIENT
  Sex: Female

DRUGS (13)
  1. SIMPONI [Suspect]
     Active Substance: GOLIMUMAB
     Indication: Rheumatoid arthritis
     Route: 058
     Dates: start: 201502, end: 201507
  2. REMICADE [Suspect]
     Active Substance: INFLIXIMAB
     Indication: Rheumatoid arthritis
     Route: 042
     Dates: start: 201402, end: 201411
  3. METHOTREXATE [Concomitant]
     Active Substance: METHOTREXATE
  4. METHOTREXATE [Concomitant]
     Active Substance: METHOTREXATE
  5. SULFASALAZINE [Concomitant]
     Active Substance: SULFASALAZINE
  6. SULFASALAZINE [Concomitant]
     Active Substance: SULFASALAZINE
  7. MABTHERA [Concomitant]
     Active Substance: RITUXIMAB
     Dates: start: 201508
  8. MABTHERA [Concomitant]
     Active Substance: RITUXIMAB
     Dates: start: 201608
  9. MABTHERA [Concomitant]
     Active Substance: RITUXIMAB
     Dates: start: 201612
  10. MABTHERA [Concomitant]
     Active Substance: RITUXIMAB
     Dates: start: 201801
  11. RITUXIMAB [Concomitant]
     Active Substance: RITUXIMAB
     Dates: start: 201903
  12. RITUXIMAB [Concomitant]
     Active Substance: RITUXIMAB
     Dates: start: 202003
  13. OLUMIANT [Concomitant]
     Active Substance: BARICITINIB
     Dates: start: 202101

REACTIONS (1)
  - COVID-19 [Fatal]
